FAERS Safety Report 5250733-2 (Version None)
Quarter: 2007Q1

REPORT INFORMATION
  Report Type: 
  Country: None (occurrence: None)
  Receive Date: 20070228
  Receipt Date: 20060622
  Transmission Date: 20070707
  Serious: No
  Sender: FDA-Public Use
  Company Number: US-GLAXOSMITHKLINE-A0610571A

PATIENT
  Sex: Male
  Weight: 2.5 kg

DRUGS (7)
  1. LAMICTAL [Suspect]
     Indication: BIPOLAR DISORDER
     Dates: start: 20051212, end: 20060204
  2. SEROQUEL [Concomitant]
     Dosage: 400MG PER DAY
  3. TOPAMAX [Concomitant]
     Dosage: 50MG PER DAY
  4. DEPAKOTE [Concomitant]
     Dosage: 1000MG PER DAY
  5. LEXAPRO [Concomitant]
     Dosage: 10MG PER DAY
  6. HALDOL [Concomitant]
     Dosage: 3MG PER DAY
  7. CRACK COCAINE [Concomitant]

REACTIONS (2)
  - ACOUSTIC STIMULATION TESTS ABNORMAL [None]
  - DRUG EXPOSURE DURING PREGNANCY [None]
